FAERS Safety Report 4282032-X (Version None)
Quarter: 2004Q1

REPORT INFORMATION
  Report Type: 
  Country: None (occurrence: None)
  Receive Date: 20040128
  Receipt Date: 20040112
  Transmission Date: 20041129
  Serious: Yes (Death, Hospitalization)
  Sender: FDA-Public Use
  Company Number: 7258

PATIENT
  Age: 75 Year
  Sex: Male

DRUGS (4)
  1. LEUCOVORIN CALCIUM [Suspect]
     Indication: COLORECTAL CANCER
     Route: 042
     Dates: start: 20030901, end: 20031124
  2. FLUOROURACIL [Suspect]
     Indication: COLORECTAL CANCER
     Route: 042
     Dates: start: 20030901, end: 20031124
  3. OXALIPLATIN [Suspect]
     Indication: COLORECTAL CANCER
     Dosage: 85 MG/M2 FORTNIGHTLY
     Route: 042
     Dates: start: 20030901, end: 20031124
  4. CETUXIMAB [Suspect]
     Indication: COLORECTAL CANCER
     Dosage: 250 MG/M2 WEEKLY
     Route: 042
     Dates: start: 20030901, end: 20031201

REACTIONS (3)
  - INFECTION [None]
  - PNEUMONIA [None]
  - TACHYCARDIA [None]
